FAERS Safety Report 24977863 (Version 2)
Quarter: 2025Q2

REPORT INFORMATION
  Report Type: Spontaneous
  Country: US (occurrence: US)
  Receive Date: 20250217
  Receipt Date: 20250516
  Transmission Date: 20250716
  Serious: No
  Sender: PFIZER
  Company Number: US-PFIZER INC-202500033399

PATIENT
  Age: 64 Year
  Sex: Male
  Weight: 86.18 kg

DRUGS (1)
  1. TESTOSTERONE CYPIONATE [Suspect]
     Active Substance: TESTOSTERONE CYPIONATE
     Indication: Blood testosterone decreased
     Dosage: 0.5 ML, WEEKLY

REACTIONS (2)
  - Eye disorder [Unknown]
  - Poor quality product administered [Unknown]
